FAERS Safety Report 9718907 (Version 3)
Quarter: 2014Q1

REPORT INFORMATION
  Report Type: Spontaneous
  Country: US (occurrence: US)
  Receive Date: 20131127
  Receipt Date: 20140226
  Transmission Date: 20141002
  Serious: Yes (Other)
  Sender: FDA-Public Use
  Company Number: US-PFIZER INC-2013339402

PATIENT
  Age: 49 Year
  Sex: Male
  Weight: 77 kg

DRUGS (11)
  1. CHANTIX [Suspect]
     Indication: SMOKING CESSATION THERAPY
     Dosage: 1 MG, 2X/DAY
     Route: 048
     Dates: start: 201305, end: 201308
  2. VIAGRA [Concomitant]
     Dosage: UNK
  3. ADVAIR DISKUS [Concomitant]
     Dosage: 250MCG/50MCG, 1 PUFF TWICE A DAY
     Route: 055
  4. PRO-AIR [Concomitant]
     Dosage: 90 MCG, 2 PUFFS FOUR TIMES A DAY
     Route: 055
  5. SPIRIVA [Concomitant]
     Dosage: 18 MCG, DAILY (1 CAPSULE)
     Route: 055
  6. ALBUTEROL [Concomitant]
     Indication: WHEEZING
     Dosage: 2.5 MG/3 ML, AS NEEDED
     Route: 055
  7. CITALOPRAM [Concomitant]
     Dosage: 20 MG, DAILY
     Route: 048
  8. IBUPROFEN [Concomitant]
     Dosage: 200 MG, EVERY 4 HOURS
     Route: 048
  9. TRAZODONE [Concomitant]
     Dosage: 100 MG, EVERY EVENING
     Route: 048
  10. LATUDA [Concomitant]
     Dosage: 40 MG, DAILY
     Route: 048
  11. XANAX [Concomitant]
     Indication: ANXIETY
     Dosage: 1 MG, AS NEEDED
     Route: 048

REACTIONS (11)
  - Overdose [Unknown]
  - Suicide attempt [Unknown]
  - Suicidal ideation [Recovered/Resolved]
  - Mood swings [Recovering/Resolving]
  - Social avoidant behaviour [Unknown]
  - Psychiatric symptom [Unknown]
  - Depression [Recovering/Resolving]
  - Abnormal dreams [Unknown]
  - Nightmare [Unknown]
  - Drug ineffective [Unknown]
  - Drug hypersensitivity [Unknown]
